FAERS Safety Report 5656189-X (Version None)
Quarter: 2008Q1

REPORT INFORMATION
  Report Type: 
  Country: None (occurrence: None)
  Receive Date: 20080305
  Receipt Date: 20080220
  Transmission Date: 20080703
  Serious: Yes (Other)
  Sender: FDA-Public Use
  Company Number: CAP08000037

PATIENT
  Age: 71 Year
  Sex: Female

DRUGS (7)
  1. ACTONEL [Suspect]
     Dosage: ORAL
     Route: 048
     Dates: start: 20070601
  2. ARTHROTEC /00372302/ (DICLOFENAC SODIUM) [Concomitant]
  3. RANITIDINE [Concomitant]
  4. LORAZEPAM [Concomitant]
  5. NASONEX [Concomitant]
  6. CITALOPRAM HYDROBROMIDE [Concomitant]
  7. CRESTOR [Concomitant]

REACTIONS (2)
  - EYE INFECTION [None]
  - METASTASES TO EYE [None]
